FAERS Safety Report 5333961-7 (Version None)
Quarter: 2007Q2

REPORT INFORMATION
  Report Type: 
  Country: None (occurrence: None)
  Receive Date: 20070524
  Receipt Date: 20070514
  Transmission Date: 20071010
  Serious: Yes (Other)
  Sender: FDA-Public Use
  Company Number: CA-PFIZER INC-2007028908

PATIENT
  Sex: Female
  Weight: 63.5 kg

DRUGS (9)
  1. NEURONTIN [Suspect]
     Indication: NERVE COMPRESSION
     Dosage: DAILY DOSE:1200MG
     Route: 048
  2. NEURONTIN [Suspect]
     Indication: PROCEDURAL PAIN
  3. NEURONTIN [Suspect]
     Indication: SPINAL COLUMN STENOSIS
  4. NEURONTIN [Suspect]
     Indication: ABDOMINAL PAIN
  5. NEURONTIN [Suspect]
     Indication: INTERVERTEBRAL DISC DEGENERATION
  6. ATIVAN [Concomitant]
     Indication: ANXIETY
     Route: 060
  7. TRIFLUOPERAZINE HCL [Concomitant]
  8. LORAZEPAM [Concomitant]
     Route: 060
  9. CLONAZEPAM [Concomitant]
     Dates: start: 20070101

REACTIONS (8)
  - CONFUSIONAL STATE [None]
  - COORDINATION ABNORMAL [None]
  - DEPERSONALISATION [None]
  - INSOMNIA [None]
  - MENTAL IMPAIRMENT [None]
  - RESTLESSNESS [None]
  - SOMNOLENCE [None]
  - WEIGHT INCREASED [None]
